FAERS Safety Report 24893951 (Version 1)
Quarter: 2025Q1

REPORT INFORMATION
  Report Type: Spontaneous
  Country: US (occurrence: None)
  Receive Date: 20250128
  Receipt Date: 20250128
  Transmission Date: 20250409
  Serious: Yes (Hospitalization)
  Sender: FDA-CTU
  Company Number: None

PATIENT
  Age: 63 Year
  Sex: Male
  Weight: 79.8 kg

DRUGS (3)
  1. FLUOROURACIL [Suspect]
     Active Substance: FLUOROURACIL
  2. LEUCOVORIN CALCIUM [Concomitant]
     Active Substance: LEUCOVORIN CALCIUM
  3. ELOXATIN [Concomitant]
     Active Substance: OXALIPLATIN

REACTIONS (15)
  - Nausea [None]
  - Vomiting [None]
  - Unresponsive to stimuli [None]
  - Overdose [None]
  - Mental status changes [None]
  - Dyspnoea [None]
  - Sinus tachycardia [None]
  - Urinary tract infection [None]
  - Urosepsis [None]
  - Electrocardiogram ST-T segment depression [None]
  - Troponin I increased [None]
  - Arteriosclerosis [None]
  - Iliac artery stenosis [None]
  - Peripheral artery thrombosis [None]
  - Conduction disorder [None]

NARRATIVE: CASE EVENT DATE: 20250126
